FAERS Safety Report 9887313 (Version 1)
Quarter: 2014Q1

REPORT INFORMATION
  Report Type: Report from Study
  Country: US (occurrence: US)
  Receive Date: 20140211
  Receipt Date: 20140211
  Transmission Date: 20141002
  Serious: Yes (Other)
  Sender: FDA-Public Use
  Company Number: US-ROCHE-1346790

PATIENT
  Sex: Female

DRUGS (3)
  1. LUCENTIS [Suspect]
     Indication: MACULAR OEDEMA
     Dosage: BOTH EYES
     Route: 065
     Dates: start: 2013
  2. JANUMET [Concomitant]
     Indication: DIABETES MELLITUS
  3. COREG [Concomitant]
     Indication: BLOOD PRESSURE

REACTIONS (4)
  - Retinal cyst [Recovered/Resolved]
  - Retinal tear [Recovered/Resolved]
  - Visual acuity reduced [Not Recovered/Not Resolved]
  - Drug ineffective [Unknown]
